FAERS Safety Report 6766234-6 (Version None)
Quarter: 2010Q2

REPORT INFORMATION
  Report Type: 
  Country: None (occurrence: None)
  Receive Date: 20100611
  Receipt Date: 20100531
  Transmission Date: 20101027
  Serious: Yes (Other)
  Sender: FDA-Public Use
  Company Number: BR-PFIZER INC-2010067924

PATIENT
  Sex: Female

DRUGS (2)
  1. ZYVOX [Suspect]
  2. NOREPINEPHRINE [Suspect]

REACTIONS (3)
  - DRUG TOXICITY [None]
  - HEADACHE [None]
  - HYPERTENSIVE CRISIS [None]
